FAERS Safety Report 8968288 (Version 1)
Quarter: 2012Q4

REPORT INFORMATION
  Report Type: 
  Country: CN (occurrence: CN)
  Receive Date: 20121217
  Receipt Date: 20121217
  Transmission Date: 20130627
  Serious: Yes (Hospitalization)
  Sender: FDA-Public Use
  Company Number: CN-ROCHE-1169983

PATIENT
  Age: 4 Year
  Sex: Male

DRUGS (2)
  1. CEFTRIAXONE SODIUM [Suspect]
     Indication: LYMPHADENITIS
     Route: 041
     Dates: start: 20100922, end: 20100924
  2. ANDROGRAPHOLIDE [Concomitant]
     Indication: LYMPHADENITIS
     Route: 041
     Dates: start: 20100922

REACTIONS (2)
  - Cholecystitis [Recovered/Resolved]
  - Cholelithiasis [Recovered/Resolved]
